FAERS Safety Report 9657153 (Version 2)
Quarter: 2013Q4

REPORT INFORMATION
  Report Type: Report from Study
  Country: CO (occurrence: CO)
  Receive Date: 20131030
  Receipt Date: 20131111
  Transmission Date: 20140711
  Serious: Yes (Hospitalization)
  Sender: FDA-Public Use
  Company Number: CO-ROCHE-1296889

PATIENT
  Age: 62 Year
  Sex: Female
  Weight: 66.74 kg

DRUGS (3)
  1. XOLAIR [Suspect]
     Indication: ASTHMA
     Route: 065
     Dates: start: 20130228
  2. SERETIDE [Concomitant]
  3. MONTELUKAST [Concomitant]

REACTIONS (1)
  - Asthmatic crisis [Recovered/Resolved]
